FAERS Safety Report 15173359 (Version 1)
Quarter: 2018Q3

REPORT INFORMATION
  Report Type: Spontaneous
  Country: US (occurrence: US)
  Receive Date: 20180720
  Receipt Date: 20180720
  Transmission Date: 20181010
  Serious: No
  Sender: FDA-Public Use
  Company Number: US-ASTRAZENECA-2016SE72865

PATIENT
  Age: 22291 Day
  Sex: Female

DRUGS (2)
  1. TAGRISSO [Suspect]
     Active Substance: OSIMERTINIB
     Indication: BRONCHIAL CARCINOMA
     Route: 048
     Dates: start: 20170428
  2. IRESSA [Suspect]
     Active Substance: GEFITINIB
     Indication: BRONCHIAL CARCINOMA
     Route: 048
     Dates: start: 20160513

REACTIONS (5)
  - Eye discharge [Unknown]
  - Acne [Unknown]
  - Diarrhoea [Unknown]
  - Headache [Unknown]
  - Dyspnoea [Unknown]

NARRATIVE: CASE EVENT DATE: 20160629
